FAERS Safety Report 11579852 (Version 2)
Quarter: 2015Q4

REPORT INFORMATION
  Report Type: Spontaneous
  Country: JP (occurrence: JP)
  Receive Date: 20150930
  Receipt Date: 20151118
  Transmission Date: 20160304
  Serious: Yes (Hospitalization)
  Sender: FDA-Public Use
  Company Number: JP-PFIZER INC-2015313202

PATIENT
  Age: 67 Year
  Sex: Male
  Weight: 51 kg

DRUGS (1)
  1. SUTENT [Suspect]
     Active Substance: SUNITINIB MALATE
     Indication: GASTROINTESTINAL STROMAL TUMOUR
     Dosage: 50 MG, 1X/DAY
     Route: 048
     Dates: start: 20150828, end: 20150912

REACTIONS (1)
  - Oral disorder [Recovered/Resolved]

NARRATIVE: CASE EVENT DATE: 20150912
